FAERS Safety Report 12158864 (Version 1)
Quarter: 2016Q1

REPORT INFORMATION
  Report Type: Spontaneous
  Country: US (occurrence: US)
  Receive Date: 20160308
  Receipt Date: 20160308
  Transmission Date: 20160526
  Serious: No
  Sender: FDA-Public Use
  Company Number: US-JNJFOC-20160206590

PATIENT
  Age: 57 Year
  Sex: Female
  Weight: 72.58 kg

DRUGS (1)
  1. TYLENOL REGULAR STRENGTH [Suspect]
     Active Substance: ACETAMINOPHEN
     Indication: NASOPHARYNGITIS
     Route: 048
     Dates: start: 20160204, end: 20160204

REACTIONS (6)
  - Product size issue [Unknown]
  - Choking sensation [Recovered/Resolved]
  - Product quality issue [Unknown]
  - Product lot number issue [None]
  - Off label use [Recovered/Resolved]
  - Product use issue [Recovered/Resolved]

NARRATIVE: CASE EVENT DATE: 20160204
